FAERS Safety Report 7347174-0 (Version None)
Quarter: 2011Q1

REPORT INFORMATION
  Report Type: 
  Country: None (occurrence: None)
  Receive Date: 20110311
  Receipt Date: 20110311
  Transmission Date: 20110831
  Serious: Yes (Hospitalization, Other)
  Sender: FDA-Public Use
  Company Number: US-PFIZER INC-2009159949

PATIENT
  Age: 45 Year
  Sex: Female
  Weight: 53.515 kg

DRUGS (5)
  1. CHANTIX [Suspect]
     Indication: SMOKING CESSATION THERAPY
     Dates: start: 20070401, end: 20070910
  2. FLEXERIL [Concomitant]
     Dosage: UNK
  3. MARIJUANA [Concomitant]
     Indication: FIBROMYALGIA
     Dosage: UNK
  4. DRUG, UNSPECIFIED [Concomitant]
     Indication: ASTHMA
     Dosage: UNK
  5. VALIUM [Concomitant]
     Dosage: UNK

REACTIONS (12)
  - DEPENDENCE [None]
  - PALPITATIONS [None]
  - UNEVALUABLE EVENT [None]
  - PARANOIA [None]
  - BLOOD POTASSIUM DECREASED [None]
  - DRUG HYPERSENSITIVITY [None]
  - WRONG TECHNIQUE IN DRUG USAGE PROCESS [None]
  - MENSTRUATION IRREGULAR [None]
  - ACUTE PSYCHOSIS [None]
  - INCOHERENT [None]
  - DYSPNOEA [None]
  - STRESS [None]
